FAERS Safety Report 6256148-2 (Version None)
Quarter: 2009Q3

REPORT INFORMATION
  Report Type: 
  Country: None (occurrence: None)
  Receive Date: 20090706
  Receipt Date: 20090624
  Transmission Date: 20100115
  Serious: Yes (Other)
  Sender: FDA-Public Use
  Company Number: PHEH2009US06602

PATIENT
  Sex: Female

DRUGS (4)
  1. GENTEAL (NVO) [Suspect]
     Dosage: UNK
     Dates: start: 20070605
  2. CEVIMELINE [Concomitant]
  3. LOSARTAN POTASSIUM [Concomitant]
  4. AMLODIPINE [Concomitant]

REACTIONS (7)
  - DRY SKIN [None]
  - INFLAMMATION [None]
  - LIP BLISTER [None]
  - LIP SWELLING [None]
  - PRURITUS [None]
  - RASH [None]
  - STOMATITIS [None]
